FAERS Safety Report 4362257-5 (Version None)
Quarter: 2004Q2

REPORT INFORMATION
  Report Type: 
  Country: None (occurrence: None)
  Receive Date: 20040517
  Receipt Date: 20040304
  Transmission Date: 20050107
  Serious: Yes (Other)
  Sender: FDA-Public Use
  Company Number: NSADSS2002026314

PATIENT
  Age: 35 Year
  Sex: Female
  Weight: 58.9676 kg

DRUGS (2)
  1. ORTHO TRI-CYCLEN [Suspect]
     Dosage: 1 DOSE (S), 1 IN 1 DAY, ORAL
     Route: 048
     Dates: start: 20020324, end: 20030601
  2. PRENATAL VITAMINS (UNSPECIFIED) [Concomitant]

REACTIONS (6)
  - DRUG EXPOSURE DURING PREGNANCY [None]
  - GESTATIONAL DIABETES [None]
  - PREGNANCY ON ORAL CONTRACEPTIVE [None]
  - PREMATURE BABY [None]
  - PREMATURE LABOUR [None]
  - URINARY TRACT INFECTION [None]
